FAERS Safety Report 5486813-6 (Version None)
Quarter: 2007Q4

REPORT INFORMATION
  Report Type: 
  Country: None (occurrence: None)
  Receive Date: 20071012
  Receipt Date: 20071012
  Transmission Date: 20080405
  Serious: No
  Sender: FDA-Public Use
  Company Number: None

PATIENT
  Sex: Male

DRUGS (1)
  1. HYDROCODONE BITARTRATE [Suspect]

REACTIONS (4)
  - GASTROINTESTINAL PAIN [None]
  - GROIN PAIN [None]
  - HAEMATOCHEZIA [None]
  - RASH [None]
